FAERS Safety Report 24095435 (Version 1)
Quarter: 2024Q3

REPORT INFORMATION
  Report Type: Spontaneous
  Country: US (occurrence: None)
  Receive Date: 20240715
  Receipt Date: 20240715
  Transmission Date: 20241017
  Serious: Yes (Hospitalization)
  Sender: Public
  Company Number: None

PATIENT
  Age: 68 Year
  Sex: Female

DRUGS (9)
  1. CALQUENCE [Suspect]
     Active Substance: ACALABRUTINIB
     Indication: Chronic lymphocytic leukaemia
     Dosage: FREQUENCY : TWICE A DAY;?
     Route: 048
     Dates: start: 20240515
  2. PANADOL [Concomitant]
     Active Substance: ACETAMINOPHEN
  3. GAZYVA [Concomitant]
     Active Substance: OBINUTUZUMAB
  4. FOLIC ACID [Concomitant]
     Active Substance: FOLIC ACID
  5. INDAPAMIDE [Concomitant]
     Active Substance: INDAPAMIDE
  6. LEVOTHYROXINE [Concomitant]
     Active Substance: LEVOTHYROXINE\LEVOTHYROXINE SODIUM
  7. METOPROLOL SUCCINATE [Concomitant]
     Active Substance: METOPROLOL SUCCINATE
  8. PREDNISONE [Concomitant]
     Active Substance: PREDNISONE
  9. SIMVASTATIN [Concomitant]
     Active Substance: SIMVASTATIN

REACTIONS (3)
  - Contusion [None]
  - Dyspnoea [None]
  - Sepsis [None]

NARRATIVE: CASE EVENT DATE: 20240622
